FAERS Safety Report 8225529-X (Version None)
Quarter: 2012Q1

REPORT INFORMATION
  Report Type: 
  Country: None (occurrence: None)
  Receive Date: 20120321
  Receipt Date: 20120314
  Transmission Date: 20120608
  Serious: Yes (Other)
  Sender: FDA-Public Use
  Company Number: US-SANOFI-AVENTIS-2012SA018225

PATIENT

DRUGS (3)
  1. DOCETAXEL [Suspect]
     Route: 065
  2. BEVACIZUMAB [Suspect]
     Dosage: CONTINUED UPTO 1 YEAR
     Route: 041
  3. THERAPEUTIC RADIOPHARMACEUTICALS [Suspect]
     Dosage: 70 GY/35 FXS
     Route: 065

REACTIONS (1)
  - PHARYNGEAL HAEMORRHAGE [None]
